FAERS Safety Report 20876212 (Version 1)
Quarter: 2022Q2

REPORT INFORMATION
  Report Type: Spontaneous
  Country: NL (occurrence: NL)
  Receive Date: 20220526
  Receipt Date: 20220526
  Transmission Date: 20220721
  Serious: Yes (Death)
  Sender: FDA-Public Use
  Company Number: None

PATIENT
  Age: 67 Year
  Sex: Male
  Weight: 86 kg

DRUGS (5)
  1. AMIODARONE [Suspect]
     Active Substance: AMIODARONE
     Indication: Arrhythmia
     Dosage: 600 MILLIGRAM DAILY; AMIODARON TABLET 200MG / BRAND NAME NOT SPECIFIED, THERAPY START DATE  : ASKU
     Dates: start: 20220331
  2. ROSUVASTATIN [Concomitant]
     Active Substance: ROSUVASTATIN
     Dosage: THERAPY START DATE AND END DATE : ASKU, UNIT DOSE:  20 MG (MILLIGRAM) , ROSUVASTATIN TABLET 20MG / B
  3. PANTOPRAZOLE SODIUM [Concomitant]
     Active Substance: PANTOPRAZOLE SODIUM
     Dosage: THERAPY START DATE AND END DATE : ASKU,UNIT DOSE: 40 MG (MILLIGRAM), PANTOPRAZOL TABLET MSR 40MG / B
  4. EZETIMIBE [Concomitant]
     Active Substance: EZETIMIBE
     Dosage: THERAPY START DATE AND END DATE : ASKU , UNIT DOSE: 10 MG (MILLIGRAM) EZETIMIB TABLET 10MG / BRAND N
  5. ACENOCOUMAROL [Concomitant]
     Active Substance: ACENOCOUMAROL
     Dosage: UNIT DOSE:, 1 MG (MILLIGRAM),ACENOCOUMAROL TABLET 1MG / BRAND NAME NOT SPECIFIED, THERAPY START DATE

REACTIONS (1)
  - Sudden cardiac death [Fatal]

NARRATIVE: CASE EVENT DATE: 20220402
